FAERS Safety Report 6982345-4 (Version None)
Quarter: 2010Q3

REPORT INFORMATION
  Report Type: 
  Country: None (occurrence: None)
  Receive Date: 20100914
  Receipt Date: 20100912
  Transmission Date: 20110219
  Serious: Yes (Death)
  Sender: FDA-Public Use
  Company Number: US-GILEAD-2010-0031796

PATIENT
  Sex: Female
  Weight: 59.928 kg

DRUGS (13)
  1. LETAIRIS [Suspect]
     Indication: PULMONARY ARTERIAL HYPERTENSION
     Route: 048
     Dates: start: 20100706
  2. COUMADIN [Concomitant]
  3. ASPIRIN [Concomitant]
  4. LOPRESSOR [Concomitant]
  5. DIOVAN [Concomitant]
  6. PRAVACHOL [Concomitant]
  7. SPIRIVA [Concomitant]
  8. JANUVIA [Concomitant]
  9. PRANDIN [Concomitant]
  10. LUNESTA [Concomitant]
  11. TYLENOL [Concomitant]
  12. DARVOCET [Concomitant]
  13. KLOR-CON [Concomitant]

REACTIONS (1)
  - DEATH [None]
